FAERS Safety Report 18733343 (Version 1)
Quarter: 2021Q1

REPORT INFORMATION
  Report Type: Spontaneous
  Country: CN (occurrence: CN)
  Receive Date: 20210113
  Receipt Date: 20210113
  Transmission Date: 20210419
  Serious: Yes (Life-Threatening, Other)
  Sender: FDA-Public Use
  Company Number: CN-SHANGHAI HENGRUI PHARMACEUTICAL CO., LTD.-2105263

PATIENT
  Age: 37 Year
  Sex: Male
  Weight: 70 kg

DRUGS (1)
  1. SEVOFLURANE USP, 100%, LIQUID FOR INHALATION [Suspect]
     Active Substance: SEVOFLURANE
     Indication: GENERAL ANAESTHESIA
     Route: 055
     Dates: start: 20201222, end: 20201222

REACTIONS (5)
  - Laryngeal oedema [Recovering/Resolving]
  - Pharyngeal oedema [Recovering/Resolving]
  - Mucosal haemorrhage [Recovering/Resolving]
  - Oedema mouth [Recovering/Resolving]
  - Nasal oedema [Recovering/Resolving]

NARRATIVE: CASE EVENT DATE: 20201222
